FAERS Safety Report 17017995 (Version 1)
Quarter: 2019Q4

REPORT INFORMATION
  Report Type: Spontaneous
  Country: BR (occurrence: BR)
  Receive Date: 20191111
  Receipt Date: 20191111
  Transmission Date: 20200122
  Serious: Yes (Death, Hospitalization)
  Sender: FDA-Public Use
  Company Number: BR-PURDUE PHARMA-GBR-2019-0072478

PATIENT
  Age: 79 Year
  Sex: Male

DRUGS (1)
  1. OXYCONTIN [Suspect]
     Active Substance: OXYCODONE HYDROCHLORIDE
     Indication: PAIN
     Dosage: 1 TABLET, Q12H (STRENGTH 10 MG) (USED ONLY 2 BOXES)
     Route: 048
     Dates: end: 20190826

REACTIONS (5)
  - Decreased appetite [Unknown]
  - Pain [Unknown]
  - Death [Fatal]
  - Gastrointestinal motility disorder [Unknown]
  - Weight decreased [Unknown]

NARRATIVE: CASE EVENT DATE: 20190826
